FAERS Safety Report 6464341-9 (Version None)
Quarter: 2009Q4

REPORT INFORMATION
  Report Type: 
  Country: None (occurrence: None)
  Receive Date: 20091130
  Receipt Date: 20091130
  Transmission Date: 20100525
  Serious: Yes (Hospitalization)
  Sender: FDA-Public Use
  Company Number: None

PATIENT
  Age: 53 Year
  Sex: Male
  Weight: 142 kg

DRUGS (1)
  1. DASATINIB [Suspect]
     Indication: CHRONIC MYELOID LEUKAEMIA
     Dosage: 100 MG BID PO
     Route: 048
     Dates: start: 20090212, end: 20090320

REACTIONS (3)
  - ARTHRALGIA [None]
  - BONE MARROW FAILURE [None]
  - RASH [None]
